FAERS Safety Report 8209689-2 (Version None)
Quarter: 2012Q1

REPORT INFORMATION
  Report Type: 
  Country: None (occurrence: None)
  Receive Date: 20120228
  Receipt Date: 20110902
  Transmission Date: 20120608
  Serious: Yes (Hospitalization)
  Sender: FDA-Public Use
  Company Number: WAES 1109USA00386

PATIENT
  Sex: Male

DRUGS (1)
  1. PRINIVIL [Suspect]
     Indication: PRODUCT USED FOR UNKNOWN INDICATION
     Dosage: UNK/UNK/PO
     Route: 048

REACTIONS (3)
  - LIP SWELLING [None]
  - SWELLING FACE [None]
  - DYSPNOEA [None]
